FAERS Safety Report 4310768-0 (Version None)
Quarter: 2004Q1

REPORT INFORMATION
  Report Type: 
  Country: None (occurrence: None)
  Receive Date: 20040303
  Receipt Date: 20040223
  Transmission Date: 20041129
  Serious: Yes (Hospitalization)
  Sender: FDA-Public Use
  Company Number: WAES 0402USA01747

PATIENT
  Age: 56 Year
  Sex: Male
  Weight: 50 kg

DRUGS (1)
  1. STROMECTOL [Suspect]
     Route: 048
     Dates: start: 20031205, end: 20031205

REACTIONS (10)
  - ANAL SPHINCTER ATONY [None]
  - ASTHENIA [None]
  - BLADDER SPHINCTER ATONY [None]
  - DIARRHOEA [None]
  - HEADACHE [None]
  - INCOHERENT [None]
  - PRURITUS [None]
  - PYREXIA [None]
  - URINARY INCONTINENCE [None]
  - VERTIGO [None]
